FAERS Safety Report 8897270 (Version 1)
Quarter: 2012Q4

REPORT INFORMATION
  Report Type: 
  Country: US (occurrence: US)
  Receive Date: 20121108
  Receipt Date: 20121108
  Transmission Date: 20130627
  Serious: No
  Sender: FDA-Public Use
  Company Number: US-AMGEN-USASP2012012109

PATIENT
  Sex: Female

DRUGS (10)
  1. ENBREL [Suspect]
     Indication: PRODUCT USED FOR UNKNOWN INDICATION
     Dosage: 50 mg, qwk
     Route: 058
  2. MELOXICAM [Concomitant]
     Dosage: 7.5 UNK, UNK
  3. METHOTREXATE [Concomitant]
     Dosage: 2.5 mg, UNK
  4. LORATADINE [Concomitant]
     Dosage: 10 mg, UNK
  5. LISINOPRIL [Concomitant]
     Dosage: 2.5 mg, UNK
  6. OMEPRAZOLE [Concomitant]
     Dosage: 40 mg, UNK
  7. FOLIC ACID [Concomitant]
     Dosage: 1 mg, UNK
  8. LEVOTHYROXINE [Concomitant]
     Dosage: 100 mug, UNK
  9. BUPROPION [Concomitant]
     Dosage: 150 mg, UNK
  10. MULTIVITAMIN                       /00097801/ [Concomitant]

REACTIONS (1)
  - Nasopharyngitis [Recovered/Resolved]
